FAERS Safety Report 5126957-1 (Version None)
Quarter: 2006Q4

REPORT INFORMATION
  Report Type: 
  Country: None (occurrence: None)
  Receive Date: 20061013
  Receipt Date: 20040105
  Transmission Date: 20070319
  Serious: Yes (Hospitalization)
  Sender: FDA-Public Use
  Company Number: 2004AP00007

PATIENT
  Age: 51 Year
  Sex: Male

DRUGS (8)
  1. MEROPEN [Suspect]
     Indication: PNEUMONIA
     Route: 041
     Dates: start: 20030929, end: 20031008
  2. ZITHROMAX [Suspect]
     Indication: PNEUMONIA CHLAMYDIAL
     Route: 048
     Dates: start: 20030901, end: 20030903
  3. ZITHROMAX [Suspect]
     Route: 048
     Dates: start: 20030825, end: 20030827
  4. TARIVID [Suspect]
     Indication: PNEUMONIA CHLAMYDIAL
     Route: 048
     Dates: start: 20030901, end: 20030907
  5. MINOCYCLINE HCL [Suspect]
     Indication: PNEUMONIA CHLAMYDIAL
     Route: 041
     Dates: start: 20030915, end: 20030929
  6. ERYTHROMYCIN [Concomitant]
     Indication: PNEUMONIA CHLAMYDIAL
     Route: 048
     Dates: start: 20030929, end: 20031001
  7. KLARICID [Concomitant]
     Indication: PNEUMONIA CHLAMYDIAL
     Route: 048
     Dates: start: 20031001, end: 20031008
  8. OMEPRAZOLE [Concomitant]
     Indication: REFLUX OESOPHAGITIS
     Dates: start: 20030901, end: 20030924

REACTIONS (7)
  - ARTHRALGIA [None]
  - CONDITION AGGRAVATED [None]
  - GAIT DISTURBANCE [None]
  - INTERSTITIAL LUNG DISEASE [None]
  - LYMPHOCYTE STIMULATION TEST POSITIVE [None]
  - MYALGIA [None]
  - REFLUX OESOPHAGITIS [None]
